APPROVED DRUG PRODUCT: AMITRIPTYLINE HYDROCHLORIDE
Active Ingredient: AMITRIPTYLINE HYDROCHLORIDE
Strength: 75MG
Dosage Form/Route: TABLET;ORAL
Application: A216243 | Product #004
Applicant: BRECKENRIDGE PHARMACEUTICAL INC
Approved: Jun 6, 2022 | RLD: No | RS: No | Type: DISCN